FAERS Safety Report 8340663-1 (Version None)
Quarter: 2012Q2

REPORT INFORMATION
  Report Type: 
  Country: None (occurrence: None)
  Receive Date: 20120507
  Receipt Date: 20120426
  Transmission Date: 20120825
  Serious: Yes (Other)
  Sender: FDA-Public Use
  Company Number: JP-ROCHE-1056556

PATIENT
  Sex: Male
  Weight: 62 kg

DRUGS (7)
  1. XELODA [Suspect]
     Indication: COLON CANCER METASTATIC
     Route: 048
     Dates: start: 20120321, end: 20120322
  2. PRIMPERAN (BELGIUM) [Concomitant]
     Route: 048
     Dates: start: 20120321, end: 20120328
  3. INDISETRON HYDROCHLORIDE [Concomitant]
     Route: 048
     Dates: start: 20120321, end: 20120323
  4. CADUET [Concomitant]
     Route: 048
     Dates: start: 20120321, end: 20120328
  5. AVASTIN [Suspect]
     Indication: COLON CANCER METASTATIC
     Route: 041
     Dates: start: 20120321, end: 20120321
  6. OXALIPLATIN [Concomitant]
     Indication: COLON CANCER METASTATIC
     Route: 041
     Dates: start: 20120321, end: 20120321
  7. EMEND [Concomitant]
     Route: 048
     Dates: start: 20120321, end: 20120323

REACTIONS (1)
  - CEREBELLAR INFARCTION [None]
